FAERS Safety Report 25298787 (Version 1)
Quarter: 2025Q2

REPORT INFORMATION
  Report Type: Spontaneous
  Country: FR (occurrence: FR)
  Receive Date: 20250512
  Receipt Date: 20250512
  Transmission Date: 20250717
  Serious: Yes (Death, Other)
  Sender: CHEPLAPHARM
  Company Number: None

PATIENT
  Age: 68 Year
  Sex: Female
  Weight: 172 kg

DRUGS (13)
  1. CLONAZEPAM [Suspect]
     Active Substance: CLONAZEPAM
     Indication: Status epilepticus
     Dosage: SOLUTIONS FOR DILUTION FOR INJECTION IN AMPOULES?DAILY DOSE: 1 DOSAGE FORM
     Route: 042
     Dates: start: 20250105, end: 20250111
  2. LEVETIRACETAM [Suspect]
     Active Substance: LEVETIRACETAM
     Indication: Status epilepticus
     Dosage: 1000-1000-1000?DAILY DOSE: 3000 MILLIGRAM
     Route: 042
     Dates: start: 20250105, end: 20250111
  3. ACYCLOVIR [Suspect]
     Active Substance: ACYCLOVIR
     Route: 042
     Dates: start: 20250106, end: 20250107
  4. AMOXICILLIN [Suspect]
     Active Substance: AMOXICILLIN
     Route: 042
     Dates: start: 20250106, end: 20250107
  5. CEFOTAXIME [Suspect]
     Active Substance: CEFOTAXIME SODIUM
     Route: 042
     Dates: start: 20250106, end: 20250107
  6. MEROPENEM [Suspect]
     Active Substance: MEROPENEM
     Route: 042
     Dates: start: 20250109, end: 20250110
  7. ELIQUIS [Concomitant]
     Active Substance: APIXABAN
     Dosage: 5MG, VO, 2/DAY?DAILY DOSE: 2 DOSAGE FORM
     Route: 048
  8. ALDACTONE [Concomitant]
     Active Substance: SPIRONOLACTONE
     Dosage: VO, 1/DAY?DAILY DOSE: 1 DOSAGE FORM
     Route: 048
  9. FUROSEMIDE [Concomitant]
     Active Substance: FUROSEMIDE
     Dosage: CNS, VO, 1G/DAY?DAILY DOSE: 1 GRAM
     Route: 048
  10. POTASSIUM CHLORIDE [Concomitant]
     Active Substance: POTASSIUM CHLORIDE
     Route: 048
  11. FOLIC ACID [Concomitant]
     Active Substance: FOLIC ACID
     Dosage: CNS, VO, 1/DAY?DAILY DOSE: 1 DOSAGE FORM
     Route: 048
  12. CETIRIZINE [Concomitant]
     Active Substance: CETIRIZINE HYDROCHLORIDE
     Route: 048
  13. PANTOPRAZOLE [Concomitant]
     Active Substance: PANTOPRAZOLE
     Route: 048

REACTIONS (7)
  - Toxic epidermal necrolysis [Fatal]
  - Metabolic encephalopathy [Fatal]
  - Hyperammonaemia [Unknown]
  - Acute respiratory distress syndrome [Unknown]
  - Dermatitis exfoliative generalised [Unknown]
  - Pseudomonas infection [Unknown]
  - Haemodynamic instability [Unknown]

NARRATIVE: CASE EVENT DATE: 20250109
